FAERS Safety Report 18020363 (Version 1)
Quarter: 2020Q3

REPORT INFORMATION
  Report Type: Spontaneous
  Country: CN (occurrence: CN)
  Receive Date: 20200714
  Receipt Date: 20200714
  Transmission Date: 20201103
  Serious: Yes (Other)
  Sender: FDA-Public Use
  Company Number: CN-PFIZER INC-2020266641

PATIENT
  Age: 55 Year
  Sex: Male
  Weight: 52 kg

DRUGS (1)
  1. LYRICA [Suspect]
     Active Substance: PREGABALIN
     Indication: SYMPTOMATIC TREATMENT
     Dosage: 75 MG, 2X/DAY
     Route: 048
     Dates: start: 20200616, end: 20200618

REACTIONS (2)
  - Blood calcium decreased [Unknown]
  - Seizure [Recovered/Resolved]

NARRATIVE: CASE EVENT DATE: 20200616
